FAERS Safety Report 8780275 (Version 1)
Quarter: 2012Q4

REPORT INFORMATION
  Report Type: Spontaneous
  Country: US (occurrence: None)
  Receive Date: 20120905
  Receipt Date: 20120905
  Transmission Date: 20130627
  Serious: Yes (Life-Threatening)
  Sender: FDA-Public Use
  Company Number: None

PATIENT
  Age: 68 Year
  Sex: Female
  Weight: 71.67 kg

DRUGS (1)
  1. DICLOFENAC SODIUM [Suspect]
     Indication: ARTHRITIS
     Dates: start: 20120809, end: 20120816

REACTIONS (6)
  - Abdominal discomfort [None]
  - Dyspepsia [None]
  - Diarrhoea [None]
  - Constipation [None]
  - Flatulence [None]
  - Abdominal pain upper [None]
